FAERS Safety Report 15013856 (Version 3)
Quarter: 2018Q3

REPORT INFORMATION
  Report Type: Spontaneous
  Country: US (occurrence: US)
  Receive Date: 20180614
  Receipt Date: 20180812
  Transmission Date: 20181010
  Serious: Yes (Hospitalization)
  Sender: FDA-Public Use
  Company Number: US-JNJFOC-20180601010

PATIENT
  Age: 57 Year
  Sex: Female

DRUGS (9)
  1. XARELTO [Suspect]
     Active Substance: RIVAROXABAN
     Indication: PULMONARY EMBOLISM
     Route: 048
     Dates: end: 201801
  2. XARELTO [Suspect]
     Active Substance: RIVAROXABAN
     Indication: STICKY PLATELET SYNDROME
     Dosage: 20 MG AT FIRST AND THEN 10 MG
     Route: 048
     Dates: start: 201203
  3. XARELTO [Suspect]
     Active Substance: RIVAROXABAN
     Indication: STICKY PLATELET SYNDROME
     Route: 048
     Dates: end: 201801
  4. XARELTO [Suspect]
     Active Substance: RIVAROXABAN
     Indication: PULMONARY EMBOLISM
     Dosage: 20 MG AT FIRST AND THEN 10 MG
     Route: 048
     Dates: start: 201203
  5. XARELTO [Suspect]
     Active Substance: RIVAROXABAN
     Indication: PULMONARY EMBOLISM
     Dosage: 20 MG AT FIRST AND THEN 10 MG
     Route: 048
     Dates: start: 201402, end: 201712
  6. ASPIRIN. [Suspect]
     Active Substance: ASPIRIN
     Indication: CARDIOVASCULAR DISORDER
     Route: 048
     Dates: end: 201712
  7. XARELTO [Suspect]
     Active Substance: RIVAROXABAN
     Indication: STICKY PLATELET SYNDROME
     Dosage: 20 MG AT FIRST AND THEN 10 MG
     Route: 048
     Dates: start: 201402, end: 201712
  8. TAXOTERE [Suspect]
     Active Substance: DOCETAXEL
     Indication: BREAST CANCER
     Route: 065
  9. CARBOPLATIN. [Suspect]
     Active Substance: CARBOPLATIN
     Indication: BREAST CANCER
     Route: 065

REACTIONS (4)
  - Gastrointestinal haemorrhage [Unknown]
  - Haematuria [Unknown]
  - Off label use [Unknown]
  - Incorrect dose administered [Unknown]

NARRATIVE: CASE EVENT DATE: 201203
